FAERS Safety Report 22198823 (Version 3)
Quarter: 2024Q1

REPORT INFORMATION
  Report Type: Spontaneous
  Country: US (occurrence: US)
  Receive Date: 20230411
  Receipt Date: 20240223
  Transmission Date: 20240410
  Serious: No
  Sender: FDA-Public Use
  Company Number: US-SUNOVION-2023SUN000476

PATIENT

DRUGS (4)
  1. APTIOM [Suspect]
     Active Substance: ESLICARBAZEPINE ACETATE
     Indication: Trigeminal neuralgia
     Dosage: 800 MG, TID
     Route: 048
  2. APTIOM [Suspect]
     Active Substance: ESLICARBAZEPINE ACETATE
     Dosage: UNK (CUTTING DOWN DOSE)
     Route: 048
  3. APTIOM [Suspect]
     Active Substance: ESLICARBAZEPINE ACETATE
     Dosage: 1400 MG (800MG + 600MG)
     Route: 048
     Dates: start: 20230403
  4. APTIOM [Suspect]
     Active Substance: ESLICARBAZEPINE ACETATE
     Dosage: 800 MG, TID (800 MG TABLET IN THE MORNING, AND 800 MG TABLET IN THE AFTERNOON AND AN 800 MG TABLET A
     Route: 048

REACTIONS (6)
  - Dizziness [Unknown]
  - Inappropriate schedule of product administration [Unknown]
  - Extra dose administered [Unknown]
  - Prescribed overdose [Unknown]
  - Off label use [Unknown]
  - Treatment noncompliance [Unknown]
